FAERS Safety Report 6652816-9 (Version None)
Quarter: 2010Q1

REPORT INFORMATION
  Report Type: 
  Country: None (occurrence: None)
  Receive Date: 20100325
  Receipt Date: 20100325
  Transmission Date: 20100710
  Serious: No
  Sender: FDA-Public Use
  Company Number: None

PATIENT
  Age: 61 Year
  Sex: Male
  Weight: 95.2554 kg

DRUGS (1)
  1. OLUX [Suspect]
     Indication: ALOPECIA AREATA
     Dosage: SILVER DOLLAR SIZED DOLLOP TWICE DAILY TOP
     Route: 061
     Dates: start: 20100311, end: 20100317

REACTIONS (1)
  - OCULAR HYPERAEMIA [None]
